FAERS Safety Report 10079004 (Version 2)
Quarter: 2014Q2

REPORT INFORMATION
  Report Type: Spontaneous
  Country: IT (occurrence: IT)
  Receive Date: 20140415
  Receipt Date: 20140512
  Transmission Date: 20141212
  Serious: Yes (Other)
  Sender: FDA-Public Use
  Company Number: IT-SA-2014SA041101

PATIENT
  Age: 42 Year
  Sex: Female

DRUGS (1)
  1. FERLIXIT [Suspect]
     Indication: MICROCYTIC ANAEMIA
     Dosage: SOLUTION FOR ORAL USE AND IV USE
     Route: 041
     Dates: start: 20140317, end: 20140318

REACTIONS (2)
  - Mechanical urticaria [Recovered/Resolved]
  - Generalised erythema [Recovered/Resolved]
